FAERS Safety Report 11283059 (Version 1)
Quarter: 2015Q3

REPORT INFORMATION
  Report Type: Spontaneous
  Country: US (occurrence: None)
  Receive Date: 20150716
  Receipt Date: 20150716
  Transmission Date: 20151125
  Serious: Yes (Life-Threatening)
  Sender: FDA-Public Use
  Company Number: None

PATIENT
  Age: 68 Year
  Sex: Female
  Weight: 81.65 kg

DRUGS (3)
  1. BABY ASPIRIN [Concomitant]
     Active Substance: ASPIRIN
  2. MULTI VITAMIN [Concomitant]
     Active Substance: VITAMINS
  3. MUCINEX FAST-MAX DAY TIME SEVERE COLD AND MUCINEX FAST-MAX NIGHT TIME COLD AND FLU MAX [Suspect]
     Active Substance: ACETAMINOPHEN\DEXTROMETHORPHAN HYDROBROMIDE\DIPHENHYDRAMINE HYDROCHLORIDE\GUAIFENESIN\PHENYLEPHRINE HYDROCHLORIDE
     Indication: PULMONARY CONGESTION
     Dosage: 20 ML EVERY 4 HRS, NO MORE THAN 6 X
     Route: 048
     Dates: start: 20150714, end: 20150714

REACTIONS (3)
  - Increased viscosity of upper respiratory secretion [None]
  - Rhinorrhoea [None]
  - Choking [None]

NARRATIVE: CASE EVENT DATE: 20150714
